FAERS Safety Report 19581850 (Version 1)
Quarter: 2021Q3

REPORT INFORMATION
  Report Type: Spontaneous
  Country: DE (occurrence: DE)
  Receive Date: 20210720
  Receipt Date: 20210720
  Transmission Date: 20211014
  Serious: Yes (Other)
  Sender: FDA-Public Use
  Company Number: DE-UCBSA-2021032606

PATIENT
  Sex: Female

DRUGS (19)
  1. VALPROIC ACID. [Suspect]
     Active Substance: VALPROIC ACID
     Dosage: 1000 MILLIGRAM, ONCE DAILY (QD)
  2. CLOBAZAM. [Suspect]
     Active Substance: CLOBAZAM
     Indication: GENERALISED TONIC-CLONIC SEIZURE
     Dosage: UNK
  3. BROMIDES [Suspect]
     Active Substance: UNSPECIFIED INGREDIENT
     Indication: SEVERE MYOCLONIC EPILEPSY OF INFANCY
     Dosage: UNK
     Dates: end: 200901
  4. ETHOSUXIMIDE. [Suspect]
     Active Substance: ETHOSUXIMIDE
     Indication: GENERALISED TONIC-CLONIC SEIZURE
     Dosage: UNK
  5. LEVETIRACETAM. [Suspect]
     Active Substance: LEVETIRACETAM
     Indication: GENERALISED TONIC-CLONIC SEIZURE
     Dosage: UNK
  6. OXCARBAZEPINE. [Suspect]
     Active Substance: OXCARBAZEPINE
     Indication: GENERALISED TONIC-CLONIC SEIZURE
     Dosage: UNK
  7. PHENOBARBITAL. [Suspect]
     Active Substance: PHENOBARBITAL
     Indication: GENERALISED TONIC-CLONIC SEIZURE
     Dosage: UNK
  8. BROMIDES [Suspect]
     Active Substance: UNSPECIFIED INGREDIENT
     Indication: GENERALISED TONIC-CLONIC SEIZURE
  9. SULTIAME [Suspect]
     Active Substance: SULTHIAME
     Indication: GENERALISED TONIC-CLONIC SEIZURE
     Dosage: UNK
  10. PRIMIDONE. [Suspect]
     Active Substance: PRIMIDONE
     Indication: GENERALISED TONIC-CLONIC SEIZURE
     Dosage: UNK
  11. TOPIRAMATE. [Suspect]
     Active Substance: TOPIRAMATE
     Indication: GENERALISED TONIC-CLONIC SEIZURE
     Dosage: UNK
  12. VALPROIC ACID. [Suspect]
     Active Substance: VALPROIC ACID
     Indication: GENERALISED TONIC-CLONIC SEIZURE
     Dosage: UNK
  13. VALPROIC ACID. [Suspect]
     Active Substance: VALPROIC ACID
     Indication: SEVERE MYOCLONIC EPILEPSY OF INFANCY
     Dosage: REDUCED BY 200 MG
     Dates: start: 200605
  14. CARBAMAZEPINE. [Suspect]
     Active Substance: CARBAMAZEPINE
     Indication: GENERALISED TONIC-CLONIC SEIZURE
     Dosage: UNK
  15. PHENYTOIN. [Suspect]
     Active Substance: PHENYTOIN
     Indication: GENERALISED TONIC-CLONIC SEIZURE
     Dosage: UNK
  16. PHENOBARBITAL. [Suspect]
     Active Substance: PHENOBARBITAL
     Indication: SEVERE MYOCLONIC EPILEPSY OF INFANCY
  17. LAMOTRIGINE. [Suspect]
     Active Substance: LAMOTRIGINE
     Indication: GENERALISED TONIC-CLONIC SEIZURE
     Dosage: UNK
  18. MESUXIMIDE [Suspect]
     Active Substance: METHSUXIMIDE
     Indication: GENERALISED TONIC-CLONIC SEIZURE
     Dosage: UNK
  19. VALPROIC ACID. [Suspect]
     Active Substance: VALPROIC ACID
     Dosage: 1250 MILLIGRAM, ONCE DAILY (QD)

REACTIONS (5)
  - Multiple-drug resistance [Unknown]
  - Bradyphrenia [Unknown]
  - Tremor [Unknown]
  - Obesity [Recovered/Resolved]
  - Secretion discharge [Unknown]
